FAERS Safety Report 5729930-5 (Version None)
Quarter: 2008Q2

REPORT INFORMATION
  Report Type: 
  Country: None (occurrence: None)
  Receive Date: 20080502
  Receipt Date: 20080421
  Transmission Date: 20081010
  Serious: Yes (Hospitalization)
  Sender: FDA-Public Use
  Company Number: SPV1-2008-00894

PATIENT
  Age: 33 Year
  Sex: 0
  Weight: 74.8 kg

DRUGS (1)
  1. VYVANSE [Suspect]
     Indication: ATTENTION DEFICIT/HYPERACTIVITY DISORDER
     Dosage: 70 MG, 2X/DAY:BID, ORAL
     Route: 048
     Dates: start: 20071001

REACTIONS (7)
  - ALCOHOLISM [None]
  - BIPOLAR II DISORDER [None]
  - HALLUCINATION, AUDITORY [None]
  - INAPPROPRIATE SCHEDULE OF DRUG ADMINISTRATION [None]
  - OFF LABEL USE [None]
  - OVERDOSE [None]
  - PRURITUS [None]
